FAERS Safety Report 10006049 (Version 2)
Quarter: 2014Q1

REPORT INFORMATION
  Report Type: Spontaneous
  Country: US (occurrence: US)
  Receive Date: 20140313
  Receipt Date: 20140317
  Transmission Date: 20141002
  Serious: Yes (Death, Life-Threatening, Hospitalization)
  Sender: FDA-Public Use
  Company Number: US-JNJFOC-20140306521

PATIENT
  Age: 67 Year
  Sex: Male
  Weight: 101 kg

DRUGS (9)
  1. XARELTO [Suspect]
     Indication: DEEP VEIN THROMBOSIS
     Route: 048
     Dates: start: 20130807, end: 20130917
  2. ASPIRIN [Suspect]
     Indication: PRODUCT USED FOR UNKNOWN INDICATION
     Route: 065
  3. ALBUTEROL [Concomitant]
     Dosage: 2 PUFFS AS NECCESARY
     Route: 065
  4. FORMOTEROL [Concomitant]
     Route: 055
  5. HYDROCHLOROTHIAZIDE + LISINOPRIL [Concomitant]
     Dosage: 25-20 MG
     Route: 065
  6. TIOTROPIUM [Concomitant]
     Dosage: 1 INHALATION
     Route: 055
  7. ATORVASTATIN [Concomitant]
     Route: 065
  8. DIVALPROEX SODIUM [Concomitant]
     Route: 065
  9. DIVALPROEX SODIUM [Concomitant]
     Route: 065

REACTIONS (4)
  - Death [Fatal]
  - Respiratory distress [Not Recovered/Not Resolved]
  - Anaemia [Not Recovered/Not Resolved]
  - Haematochezia [Not Recovered/Not Resolved]
